FAERS Safety Report 16070683 (Version 1)
Quarter: 2019Q2

REPORT INFORMATION
  Report Type: Spontaneous
  Country: US (occurrence: US)
  Receive Date: 20190314
  Receipt Date: 20190314
  Transmission Date: 20190711
  Serious: Yes (Other)
  Sender: FDA-Public Use
  Company Number: None

PATIENT
  Age: 23 Year
  Sex: Female
  Weight: 85.5 kg

DRUGS (1)
  1. LATUDA [Suspect]
     Active Substance: LURASIDONE HYDROCHLORIDE
     Indication: BIPOLAR DISORDER
     Dosage: ?          QUANTITY:1 TABLET(S);?
     Route: 048
     Dates: start: 20120815, end: 20181204

REACTIONS (5)
  - Fine motor skill dysfunction [None]
  - Tic [None]
  - Motor dysfunction [None]
  - Grip strength decreased [None]
  - Facial paresis [None]

NARRATIVE: CASE EVENT DATE: 20180811
